FAERS Safety Report 4550210-8 (Version None)
Quarter: 2005Q1

REPORT INFORMATION
  Report Type: 
  Country: None (occurrence: None)
  Receive Date: 20050112
  Receipt Date: 20041222
  Transmission Date: 20050727
  Serious: No
  Sender: FDA-Public Use
  Company Number: US-MERCK-0412USA02761

PATIENT
  Age: 66 Year
  Sex: Male

DRUGS (10)
  1. VYTORIN [Suspect]
     Indication: HYPERCHOLESTEROLAEMIA
     Route: 048
     Dates: start: 20040908, end: 20040927
  2. VASOTEC [Concomitant]
     Route: 048
  3. SULINDAC [Concomitant]
     Route: 065
  4. PLAVIX [Concomitant]
     Route: 065
  5. ASPIRIN [Concomitant]
     Route: 065
  6. ZANTAC [Concomitant]
     Route: 065
  7. METOPROLOL [Concomitant]
     Route: 065
  8. COUMADIN [Concomitant]
     Route: 065
  9. FLOVENT [Concomitant]
     Route: 065
  10. PROVENTIL [Concomitant]
     Route: 065

REACTIONS (1)
  - DEAFNESS BILATERAL [None]
